FAERS Safety Report 4373875-2 (Version None)
Quarter: 2004Q2

REPORT INFORMATION
  Report Type: 
  Country: None (occurrence: None)
  Receive Date: 20040609
  Receipt Date: 20040528
  Transmission Date: 20050107
  Serious: Yes (Life-Threatening, Hospitalization, Other)
  Sender: FDA-Public Use
  Company Number: CA-JNJFOC-20030603550

PATIENT
  Sex: Female
  Weight: 58 kg

DRUGS (17)
  1. REMICADE [Suspect]
     Route: 042
  2. REMICADE [Suspect]
     Route: 042
  3. REMICADE [Suspect]
     Route: 042
  4. REMICADE [Suspect]
     Route: 042
  5. REMICADE [Suspect]
     Route: 042
  6. REMICADE [Suspect]
     Route: 042
  7. REMICADE [Suspect]
     Route: 042
  8. REMICADE [Suspect]
     Route: 042
  9. REMICADE [Suspect]
     Route: 042
  10. REMICADE [Suspect]
     Indication: CROHN'S DISEASE
     Route: 042
  11. ANTIDEPRESSANTS [Concomitant]
  12. AZATHIOPRINE [Concomitant]
  13. PREDNISONE [Concomitant]
  14. MULTI-VITAMINS [Concomitant]
  15. MULTI-VITAMINS [Concomitant]
  16. VITAMIN E [Concomitant]
  17. VITAMIN C [Concomitant]

REACTIONS (16)
  - ABDOMINAL DISTENSION [None]
  - CHEST DISCOMFORT [None]
  - CONJUNCTIVITIS [None]
  - DEHYDRATION [None]
  - DIARRHOEA [None]
  - DIZZINESS [None]
  - FACIAL PALSY [None]
  - HEADACHE [None]
  - HYPERSENSITIVITY [None]
  - ILEOSTOMY [None]
  - INFLUENZA LIKE ILLNESS [None]
  - NAUSEA [None]
  - PARAESTHESIA [None]
  - PHARYNGITIS [None]
  - SINUSITIS [None]
  - WEIGHT DECREASED [None]
